FAERS Safety Report 7545372-4 (Version None)
Quarter: 2011Q2

REPORT INFORMATION
  Report Type: 
  Country: None (occurrence: None)
  Receive Date: 20110607
  Receipt Date: 20110524
  Transmission Date: 20111010
  Serious: Yes (Death)
  Sender: FDA-Public Use
  Company Number: 2011-235

PATIENT
  Age: 59 Year
  Sex: Male

DRUGS (15)
  1. LAMICTAL [Concomitant]
  2. METFORMIN HCL [Concomitant]
  3. LASIX [Concomitant]
  4. LANTUS [Concomitant]
  5. CLOZAPINE (FAZACLO) [Suspect]
     Dosage: 150 MG, QD, ORAL
     Route: 048
     Dates: start: 20110327, end: 20110401
  6. ZOCOR [Concomitant]
  7. MAGNESIUM OXIDE [Concomitant]
  8. NAPHAZOLINE HCL [Concomitant]
  9. NOVOLOG [Concomitant]
  10. PEPCID [Concomitant]
  11. SYNTHROID [Concomitant]
  12. RISPERDAL CONSTA [Concomitant]
  13. NEURONTIN [Concomitant]
  14. LYRICA [Concomitant]
  15. FENTANYL [Concomitant]

REACTIONS (1)
  - PULMONARY EMBOLISM [None]
